FAERS Safety Report 17956502 (Version 2)
Quarter: 2020Q3

REPORT INFORMATION
  Report Type: Spontaneous
  Country: SE (occurrence: SE)
  Receive Date: 20200629
  Receipt Date: 20200707
  Transmission Date: 20201103
  Serious: Yes (Hospitalization)
  Sender: FDA-Public Use
  Company Number: SE-CELGENEUS-SWE-20200503374

PATIENT
  Age: 79 Year
  Sex: Male
  Weight: 80 kg

DRUGS (17)
  1. EUSAPRIM [Concomitant]
     Active Substance: SULFAMETHOXAZOLE\TRIMETHOPRIM
     Indication: ANTIFUNGAL PROPHYLAXIS
     Dosage: 160/800MG
     Route: 048
     Dates: start: 20161124
  2. IMDUR [Concomitant]
     Active Substance: ISOSORBIDE MONONITRATE
     Indication: ANGINA PECTORIS
     Route: 048
     Dates: start: 20181218
  3. LENALIDOMIDE [Suspect]
     Active Substance: LENALIDOMIDE
     Indication: PLASMA CELL MYELOMA
     Dosage: 10 MILLIGRAM
     Route: 048
     Dates: start: 20161027, end: 20200428
  4. SODIUM FLUORIDE. [Concomitant]
     Active Substance: SODIUM FLUORIDE
     Indication: DRY MOUTH
     Route: 048
     Dates: start: 20161018
  5. DEXAMETHASONE. [Suspect]
     Active Substance: DEXAMETHASONE
     Indication: PLASMA CELL MYELOMA
     Dosage: 80 MILLIGRAM
     Route: 048
     Dates: start: 20161027, end: 20200429
  6. INNOHEP [Concomitant]
     Active Substance: TINZAPARIN SODIUM
     Indication: THROMBOSIS PROPHYLAXIS
     Dosage: 4500 IU (INTERNATIONAL UNIT)
     Route: 058
     Dates: start: 20161027
  7. NITROLINGUAL [Concomitant]
     Active Substance: NITROGLYCERIN
     Indication: ANGINA PECTORIS
     Route: 048
     Dates: start: 20140520
  8. ACETYLCYSTEIN [Concomitant]
     Active Substance: ACETYLCYSTEINE
     Indication: NASOPHARYNGITIS
     Dosage: 200 MILLIGRAM
     Route: 048
     Dates: start: 20161117
  9. BACTRIM [Concomitant]
     Active Substance: SULFAMETHOXAZOLE\TRIMETHOPRIM
     Indication: ANTIFUNGAL PROPHYLAXIS
     Route: 065
  10. DOLCONTIN [Concomitant]
     Active Substance: MORPHINE
     Indication: BONE PAIN
     Route: 048
     Dates: start: 20160926
  11. SODIUM FLUORIDE. [Concomitant]
     Active Substance: SODIUM FLUORIDE
     Route: 048
     Dates: start: 20170202
  12. BEHEPAN [Concomitant]
     Indication: HYPOVITAMINOSIS
     Dosage: 1 MILLIGRAM
     Route: 048
     Dates: start: 20161012
  13. LAXOBERAL [Concomitant]
     Active Substance: SODIUM PICOSULFATE
     Indication: CONSTIPATION PROPHYLAXIS
     Dosage: 7.5 MILLIGRAM
     Route: 048
     Dates: start: 20160926
  14. LAKTULOS [Concomitant]
     Indication: CONSTIPATION PROPHYLAXIS
     Route: 048
     Dates: start: 20160926
  15. MORFIN [Concomitant]
     Indication: BONE PAIN
     Dosage: 10 MILLIGRAM
     Route: 048
     Dates: start: 20160926
  16. ALVEDON [Concomitant]
     Active Substance: ACETAMINOPHEN
     Indication: BONE PAIN
     Dosage: 4000 MILLIGRAM
     Route: 048
     Dates: start: 20160912
  17. GABAPENTIN. [Concomitant]
     Active Substance: GABAPENTIN
     Indication: ARTHRALGIA
     Dosage: 300 MILLIGRAM
     Route: 048
     Dates: start: 20190702

REACTIONS (2)
  - Arthralgia [Recovered/Resolved]
  - Fall [Recovered/Resolved]

NARRATIVE: CASE EVENT DATE: 20200504
